FAERS Safety Report 4468056-8 (Version None)
Quarter: 2004Q4

REPORT INFORMATION
  Report Type: 
  Country: None (occurrence: None)
  Receive Date: 20041004
  Receipt Date: 20040921
  Transmission Date: 20050328
  Serious: Yes (Life-Threatening, Hospitalization)
  Sender: FDA-Public Use
  Company Number: 2004069519

PATIENT
  Age: 25 Year
  Sex: Male

DRUGS (1)
  1. MAGNEX (CEFOPERAZONE, SULBACTAM) [Suspect]
     Indication: THERMAL BURN
     Dosage: INTRAVENOUS
     Route: 042

REACTIONS (1)
  - BONE MARROW DEPRESSION [None]
